FAERS Safety Report 5310208-9 (Version None)
Quarter: 2007Q2

REPORT INFORMATION
  Report Type: 
  Country: None (occurrence: None)
  Receive Date: 20070427
  Receipt Date: 20070417
  Transmission Date: 20071010
  Serious: Yes (Other)
  Sender: FDA-Public Use
  Company Number: US-ROCHE-493237

PATIENT
  Sex: Female

DRUGS (2)
  1. BONIVA [Suspect]
     Indication: DRUG USE FOR UNKNOWN INDICATION
     Dosage: START DATE REPORTED AS AUGUST TO FEBRUARY
     Route: 065
     Dates: start: 20060815, end: 20070215
  2. BONIVA [Suspect]
     Dosage: MARCH REPORTED AS START DATE
     Route: 065
     Dates: start: 20070315

REACTIONS (1)
  - RETINAL HAEMORRHAGE [None]
